FAERS Safety Report 9401558 (Version 2)
Quarter: 2013Q3

REPORT INFORMATION
  Report Type: Spontaneous
  Country: US (occurrence: US)
  Receive Date: 20130716
  Receipt Date: 20130815
  Transmission Date: 20140515
  Serious: Yes (Other)
  Sender: FDA-Public Use
  Company Number: US-009507513-1306USA005652

PATIENT
  Sex: Female

DRUGS (1)
  1. NEXPLANON [Suspect]
     Indication: CONTRACEPTION
     Dosage: 1 DF, UNK
     Route: 059
     Dates: start: 20120827, end: 20130610

REACTIONS (3)
  - Excessive granulation tissue [Recovered/Resolved]
  - Implant site inflammation [Recovered/Resolved]
  - Implant site abscess [Recovered/Resolved]
